FAERS Safety Report 4685340-3 (Version None)
Quarter: 2005Q2

REPORT INFORMATION
  Report Type: 
  Country: None (occurrence: None)
  Receive Date: 20050608
  Receipt Date: 20050601
  Transmission Date: 20051028
  Serious: Yes (Hospitalization)
  Sender: FDA-Public Use
  Company Number: FR-ROCHE-406593

PATIENT
  Age: 91 Year
  Sex: Male

DRUGS (1)
  1. ROCEPHIN [Suspect]
     Indication: BRONCHITIS
     Dosage: FORMULATION REPORTED: IM INJECTABLE AMPULES.
     Route: 030

REACTIONS (2)
  - ATRIOVENTRICULAR BLOCK [None]
  - MYOCARDIAL INFARCTION [None]
